FAERS Safety Report 7350811-8 (Version None)
Quarter: 2011Q1

REPORT INFORMATION
  Report Type: 
  Country: None (occurrence: None)
  Receive Date: 20110314
  Receipt Date: 20110308
  Transmission Date: 20110831
  Serious: Yes (Other)
  Sender: FDA-Public Use
  Company Number: US-PFIZER INC-2011035859

PATIENT
  Sex: Male
  Weight: 154 kg

DRUGS (7)
  1. IBUPROFEN (ADVIL) [Suspect]
     Indication: NASOPHARYNGITIS
     Dosage: 200 MG, UNK
     Route: 048
     Dates: start: 20110201, end: 20110201
  2. OXYCODONE [Concomitant]
     Dosage: UNK
  3. PROTONIX [Concomitant]
     Dosage: UNK
  4. COZAAR [Concomitant]
     Indication: HYPERTENSION
     Dosage: UNK
  5. MORPHINE [Concomitant]
     Dosage: 15 MG, UNK
  6. INSULIN [Concomitant]
     Dosage: UNK, 2X/DAY
  7. IBUPROFEN (ADVIL) [Suspect]
     Indication: SINUSITIS

REACTIONS (2)
  - EPISTAXIS [None]
  - DYSPNOEA [None]
